FAERS Safety Report 7150406-5 (Version None)
Quarter: 2010Q4

REPORT INFORMATION
  Report Type: 
  Country: None (occurrence: None)
  Receive Date: 20101210
  Receipt Date: 20101126
  Transmission Date: 20110411
  Serious: Yes (Hospitalization, Other)
  Sender: FDA-Public Use
  Company Number: PHHY2010JP81697

PATIENT
  Sex: Male

DRUGS (11)
  1. ICL670A ICL+DISTAB [Suspect]
     Indication: IRON OVERLOAD
     Dosage: 500 MG
     Route: 048
     Dates: start: 20091110, end: 20100105
  2. ICL670A ICL+DISTAB [Suspect]
     Dosage: 1000 MG
     Route: 048
     Dates: start: 20100106, end: 20100209
  3. ICL670A ICL+DISTAB [Suspect]
     Dosage: 375 MG
     Route: 048
     Dates: start: 20100210, end: 20100312
  4. ICL670A ICL+DISTAB [Suspect]
     Dosage: 375 MG
     Route: 048
     Dates: start: 20100329
  5. HYDREA [Suspect]
     Indication: ESSENTIAL THROMBOCYTHAEMIA
     Dosage: UNK
     Route: 048
     Dates: start: 20091110
  6. PURSENNID [Concomitant]
     Dosage: 24 MG
     Route: 048
     Dates: start: 20091110, end: 20100511
  7. ASPIRIN [Concomitant]
     Dosage: 100 MG
     Route: 048
     Dates: start: 20091110, end: 20100511
  8. MAGMITT [Concomitant]
     Dosage: 1980 MG
     Route: 048
     Dates: start: 20091110, end: 20100511
  9. VICCILLIN [Concomitant]
     Dosage: 4 G
     Dates: start: 20100311, end: 20100324
  10. CODEINE [Concomitant]
     Dosage: 60 MG
     Route: 048
     Dates: start: 20100317, end: 20100323
  11. RED BLOOD CELLS, CONCENTRATED [Concomitant]
     Dosage: 2 UNITS EVERY 1-2 WEEKS

REACTIONS (8)
  - ANAEMIA [None]
  - BLOOD UREA INCREASED [None]
  - CONSTIPATION [None]
  - COUGH [None]
  - HAEMOGLOBIN DECREASED [None]
  - PNEUMONIA PNEUMOCOCCAL [None]
  - RENAL IMPAIRMENT [None]
  - SINUSITIS [None]
